FAERS Safety Report 8812551 (Version 3)
Quarter: 2013Q1

REPORT INFORMATION
  Report Type: Spontaneous
  Country: ES (occurrence: ES)
  Receive Date: 20120927
  Receipt Date: 20130211
  Transmission Date: 20140127
  Serious: Yes (Other)
  Sender: FDA-Public Use
  Company Number: ES-JNJFOC-20120909375

PATIENT
  Age: 58 Year
  Sex: Male
  Weight: 66 kg

DRUGS (12)
  1. REMICADE [Suspect]
     Indication: COLITIS ULCERATIVE
     Route: 042
     Dates: start: 20111019
  2. REMICADE [Suspect]
     Indication: COLITIS ULCERATIVE
     Route: 042
     Dates: start: 20110914
  3. REMICADE [Suspect]
     Indication: COLITIS ULCERATIVE
     Dosage: TOTAL 3 INFUSIONS RECEIVED
     Route: 042
     Dates: start: 20110901
  4. IMUREL [Concomitant]
  5. PREDNISONE [Concomitant]
     Dosage: DOSE TAPERED
     Route: 065
     Dates: start: 20110807, end: 20111012
  6. PREDNISONE [Concomitant]
     Route: 065
  7. AZATHIOPRINE [Concomitant]
     Route: 048
     Dates: start: 20120909
  8. DILTIAZEM [Concomitant]
     Indication: HYPERTENSION
     Route: 065
  9. VALSARTAN/HYDROCHLOROTHIAZIDE [Concomitant]
     Indication: HYPERTENSION
     Dosage: DOSE: 320/25 (UNITS UNSPECIFIED)
     Route: 065
  10. APIDRA [Concomitant]
     Indication: DIABETES MELLITUS
     Route: 065
     Dates: start: 20110808, end: 201201
  11. GANCICLOVIR [Concomitant]
     Dosage: TREATMENT LASTED 3 WEEKS
     Route: 042
     Dates: start: 20110816
  12. MESALAZINE [Concomitant]
     Route: 048

REACTIONS (3)
  - Epstein-Barr virus test positive [Unknown]
  - Non-Hodgkin^s lymphoma [Recovered/Resolved]
  - Dermatitis psoriasiform [Recovered/Resolved]
